FAERS Safety Report 6522722-9 (Version None)
Quarter: 2009Q4

REPORT INFORMATION
  Report Type: 
  Country: None (occurrence: None)
  Receive Date: 20091222
  Receipt Date: 20091211
  Transmission Date: 20100525
  Serious: Yes (Other)
  Sender: FDA-Public Use
  Company Number: DSU-2009-02914

PATIENT
  Sex: Male

DRUGS (3)
  1. OLMETEC (OLMESARTAN MEDOXOMIL) (TABLET) (OLMESARTAN MEDOXOMIL) [Suspect]
     Indication: HYPERTENSION
     Dosage: 20 MG (20 MG, QD), PER ORAL
     Route: 048
     Dates: start: 20070101
  2. GLIVEC (IMATINIB MESILATE) (IMATINIB NESILATE) [Suspect]
     Indication: CHRONIC MYELOID LEUKAEMIA
     Dosage: 400 MG; 100 MG
     Dates: start: 20090101, end: 20091001
  3. GLIVEC (IMATINIB MESILATE) (IMATINIB NESILATE) [Suspect]
     Indication: CHRONIC MYELOID LEUKAEMIA
     Dosage: 400 MG; 100 MG
     Dates: start: 20090101, end: 20091101

REACTIONS (3)
  - CHRONIC MYELOID LEUKAEMIA [None]
  - HYPERSENSITIVITY [None]
  - SKIN FISSURES [None]
